FAERS Safety Report 8553622-0 (Version None)
Quarter: 2012Q3

REPORT INFORMATION
  Report Type: 
  Country: None (occurrence: None)
  Receive Date: 20120731
  Receipt Date: 20120725
  Transmission Date: 20120928
  Serious: Yes (Other)
  Sender: FDA-Public Use
  Company Number: PHHY2012JP064601

PATIENT
  Age: 58 Year
  Sex: Male

DRUGS (4)
  1. LEUCOVORIN CALCIUM [Suspect]
     Indication: METASTASES TO LUNG
     Dates: start: 20030401
  2. OXALIPLATIN [Suspect]
     Indication: METASTASES TO LUNG
     Dates: start: 20030401
  3. BEVACIZUMAB [Suspect]
     Indication: METASTASES TO LUNG
     Dates: start: 20030401
  4. FLUOROURACIL [Suspect]
     Indication: METASTASES TO LUNG
     Dates: start: 20030401

REACTIONS (3)
  - PARONYCHIA [None]
  - PALMAR-PLANTAR ERYTHRODYSAESTHESIA SYNDROME [None]
  - HYPERTENSION [None]
